FAERS Safety Report 20495435 (Version 1)
Quarter: 2022Q1

REPORT INFORMATION
  Report Type: Spontaneous
  Country: None (occurrence: CA)
  Receive Date: 20220221
  Receipt Date: 20220221
  Transmission Date: 20220423
  Serious: No
  Sender: FDA-Public Use
  Company Number: CA-HILL DERMACEUTICALS, INC.-2126061

PATIENT
  Age: 53 Year
  Sex: Female

DRUGS (3)
  1. DERMOTIC [Suspect]
     Active Substance: FLUOCINOLONE ACETONIDE
     Indication: Pruritus
     Route: 061
     Dates: start: 20211216, end: 20211217
  2. MAGNESIUM [Concomitant]
     Active Substance: MAGNESIUM
  3. ZINC [Concomitant]
     Active Substance: ZINC

REACTIONS (5)
  - Gastrooesophageal reflux disease [Recovered/Resolved]
  - Aphthous ulcer [Recovered/Resolved]
  - Diarrhoea [Recovered/Resolved]
  - Arthralgia [Recovered/Resolved]
  - Faeces discoloured [Unknown]

NARRATIVE: CASE EVENT DATE: 20211217
